FAERS Safety Report 25892318 (Version 1)
Quarter: 2025Q4

REPORT INFORMATION
  Report Type: Spontaneous
  Country: US (occurrence: US)
  Receive Date: 20251007
  Receipt Date: 20251007
  Transmission Date: 20260117
  Serious: Yes (Other)
  Sender: GLAND PHARMA LTD
  Company Number: US-GLANDPHARMA-US-2025GLNLIT01902

PATIENT
  Age: 22 Year
  Sex: Male

DRUGS (11)
  1. NELARABINE [Suspect]
     Active Substance: NELARABINE
     Indication: T-cell type acute leukaemia
     Route: 065
  2. NELARABINE [Suspect]
     Active Substance: NELARABINE
     Dosage: CYCLIC FORM
     Route: 065
  3. VENETOCLAX [Concomitant]
     Active Substance: VENETOCLAX
     Route: 065
  4. CYCLOPHOSPHAMIDE [Concomitant]
     Active Substance: CYCLOPHOSPHAMIDE
     Route: 065
  5. VINCRISTINE [Concomitant]
     Active Substance: VINCRISTINE
     Route: 065
  6. DOXORUBICIN [Concomitant]
     Active Substance: DOXORUBICIN
     Route: 065
  7. DEXAMETHASONE [Concomitant]
     Active Substance: DEXAMETHASONE
     Indication: Precursor T-lymphoblastic leukaemia acute
     Route: 065
  8. PEGASPARGASE [Concomitant]
     Active Substance: PEGASPARGASE
  9. PREDNISONE [Concomitant]
     Active Substance: PREDNISONE
     Route: 065
  10. METHOTREXATE [Concomitant]
     Active Substance: METHOTREXATE
     Route: 065
  11. MERCAPTOPURINE [Concomitant]
     Active Substance: MERCAPTOPURINE
     Route: 065

REACTIONS (2)
  - Myelopathy [Unknown]
  - Neurotoxicity [Unknown]
